FAERS Safety Report 8720388 (Version 3)
Quarter: 2012Q4

REPORT INFORMATION
  Report Type: Report from Study
  Country: FR (occurrence: FR)
  Receive Date: 20120813
  Receipt Date: 20120830
  Transmission Date: 20130627
  Serious: Yes (Hospitalization)
  Sender: FDA-Public Use
  Company Number: FR-ROCHE-1081462

PATIENT
  Age: 70 Year
  Sex: Female
  Weight: 71.4 kg

DRUGS (10)
  1. CELLCEPT [Suspect]
     Indication: RENAL TRANSPLANT
     Route: 048
     Dates: start: 20120609
  2. CELLCEPT [Suspect]
     Route: 048
     Dates: start: 20120709
  3. CELLCEPT [Suspect]
  4. CELLCEPT [Suspect]
  5. EVEROLIMUS [Suspect]
     Indication: TRANSPLANT REJECTION
     Route: 048
     Dates: start: 20120614, end: 20120713
  6. PREDNISONE [Suspect]
     Indication: TRANSPLANT REJECTION
     Route: 048
     Dates: start: 20120610
  7. PREDNISONE [Suspect]
     Route: 002
     Dates: start: 20120610
  8. IMMUNE GLOBULIN NOS [Suspect]
     Indication: TRANSPLANT REJECTION
     Dosage: 5 MG/ML
     Route: 042
     Dates: start: 20120612
  9. TACROLIMUS [Suspect]
     Indication: TRANSPLANT REJECTION
     Route: 048
     Dates: start: 20120710
  10. THYMOGLOBULIN [Concomitant]
     Route: 042
     Dates: start: 20120612

REACTIONS (6)
  - Urinoma [Recovered/Resolved]
  - Anaemia [Recovered/Resolved]
  - Complications of transplanted kidney [Recovered/Resolved]
  - Impaired healing [Not Recovered/Not Resolved]
  - Renal artery stenosis [Not Recovered/Not Resolved]
  - Complications of transplanted kidney [Recovered/Resolved]
